FAERS Safety Report 4764591-3 (Version None)
Quarter: 2005Q3

REPORT INFORMATION
  Report Type: 
  Country: None (occurrence: None)
  Receive Date: 20050906
  Receipt Date: 20050901
  Transmission Date: 20060218
  Serious: Yes (Disabling)
  Sender: FDA-Public Use
  Company Number: HQWYE662002AUG05

PATIENT
  Age: 63 Year
  Sex: Male
  Weight: 108.96 kg

DRUGS (2)
  1. PROTONIX [Suspect]
     Indication: GASTROOESOPHAGEAL REFLUX DISEASE
     Dosage: 40 MG 1X PER 1 DAY, ORAL
     Route: 048
     Dates: start: 20050703, end: 20050727
  2. LOTREL [Concomitant]

REACTIONS (3)
  - DIPLOPIA [None]
  - IMPAIRED DRIVING ABILITY [None]
  - VITH NERVE PARALYSIS [None]
